FAERS Safety Report 6317583-7 (Version None)
Quarter: 2009Q3

REPORT INFORMATION
  Report Type: 
  Country: None (occurrence: None)
  Receive Date: 20090821
  Receipt Date: 20090817
  Transmission Date: 20100115
  Serious: Yes (Hospitalization)
  Sender: FDA-Public Use
  Company Number: US-ROCHE-650904

PATIENT
  Sex: Female
  Weight: 93 kg

DRUGS (12)
  1. KLONOPIN [Suspect]
     Indication: TREMOR
     Route: 065
     Dates: end: 20090730
  2. KLONOPIN [Suspect]
     Route: 065
  3. EFFEXOR [Suspect]
     Route: 065
     Dates: end: 20090730
  4. EFFEXOR [Suspect]
     Route: 065
  5. REBIF [Suspect]
     Indication: MULTIPLE SCLEROSIS
     Dosage: FORM: INJECTION
     Route: 058
     Dates: start: 20090625, end: 20090730
  6. REBIF [Suspect]
     Route: 058
  7. NEURONTIN [Suspect]
     Route: 065
     Dates: start: 20000101, end: 20090730
  8. NEURONTIN [Suspect]
     Route: 065
  9. TRAMADOL [Suspect]
     Indication: PAIN
     Route: 065
     Dates: end: 20090730
  10. TRAMADOL [Suspect]
     Route: 065
  11. TRAZODONE HCL [Suspect]
     Indication: SLEEP DISORDER
     Route: 065
     Dates: end: 20090730
  12. TRAZODONE HCL [Suspect]
     Route: 065

REACTIONS (7)
  - ACCIDENTAL OVERDOSE [None]
  - CONVULSION [None]
  - FEELING OF BODY TEMPERATURE CHANGE [None]
  - LOSS OF CONSCIOUSNESS [None]
  - RETCHING [None]
  - TONGUE BITING [None]
  - WITHDRAWAL SYNDROME [None]
